FAERS Safety Report 16279061 (Version 2)
Quarter: 2020Q1

REPORT INFORMATION
  Report Type: Spontaneous
  Country: DE (occurrence: DE)
  Receive Date: 20190506
  Receipt Date: 20200206
  Transmission Date: 20200409
  Serious: Yes (Hospitalization)
  Sender: FDA-Public Use
  Company Number: DE-ELI_LILLY_AND_COMPANY-DE201904012667

PATIENT
  Age: 82 Year
  Sex: Female

DRUGS (15)
  1. GLIBENCLAMID [Concomitant]
     Active Substance: GLYBURIDE
     Indication: PRODUCT USED FOR UNKNOWN INDICATION
     Dosage: 1.75 MG, DAILY
     Route: 065
  2. NOVAMINSULFON [Concomitant]
     Active Substance: METAMIZOLE
     Dosage: 30 DOSAGE FORM, PRN
  3. OLUMIANT [Suspect]
     Active Substance: BARICITINIB
     Indication: RHEUMATOID ARTHRITIS
     Dosage: 2 MG, DAILY
     Route: 048
     Dates: start: 20190218, end: 20190323
  4. CANDESARTAN. [Concomitant]
     Active Substance: CANDESARTAN
     Indication: PRODUCT USED FOR UNKNOWN INDICATION
     Dosage: 8 MG, DAILY
  5. BISOPROLOL [Concomitant]
     Active Substance: BISOPROLOL
     Indication: PRODUCT USED FOR UNKNOWN INDICATION
     Dosage: 5 MG, DAILY
  6. OMEPRAZOLE. [Concomitant]
     Active Substance: OMEPRAZOLE
     Indication: PRODUCT USED FOR UNKNOWN INDICATION
     Dosage: 20 MG, DAILY
     Route: 065
  7. ASPIRIN. [Concomitant]
     Active Substance: ASPIRIN
     Indication: PRODUCT USED FOR UNKNOWN INDICATION
     Dosage: 100 MG, DAILY
  8. PREDNISOLON [PREDNISOLONE ACETATE] [Concomitant]
     Indication: RHEUMATOID ARTHRITIS
     Dosage: 5 MG, DAILY
     Route: 048
     Dates: start: 20170216
  9. GODAMED [Concomitant]
     Active Substance: ASPIRIN
     Dosage: UNK
  10. PALEXIA [Concomitant]
     Active Substance: TAPENTADOL HYDROCHLORIDE
     Indication: OSTEOARTHRITIS
     Dosage: 150 MG, DAILY
     Route: 048
     Dates: start: 20170128
  11. EMSELEX [DARIFENACIN HYDROBROMIDE] [Concomitant]
     Indication: PRODUCT USED FOR UNKNOWN INDICATION
     Dosage: 22.5 MG, WEEKLY (1/W)
     Route: 065
  12. DEKRISTOL [Concomitant]
     Active Substance: CHOLECALCIFEROL
     Indication: PRODUCT USED FOR UNKNOWN INDICATION
     Dosage: 20000 INTERNATIONAL UNIT, WEEKLY (1/W)
     Route: 065
  13. XIPAMID [Concomitant]
     Active Substance: XIPAMIDE
     Dosage: 20 MG, EACH MORNING
  14. NOVAMIN [METAMIZOLE SODIUM] [Concomitant]
     Indication: OSTEOARTHRITIS
     Dosage: 30 DOSAGE FORM, UNKNOWN
     Route: 065
     Dates: start: 20170105
  15. EMSELEX [DARIFENACIN HYDROBROMIDE] [Concomitant]
     Dosage: 7.5 DOSAGE FORM, UNKNOWN

REACTIONS (3)
  - Colitis [Recovered/Resolved]
  - Hypokalaemia [Unknown]
  - Diverticulitis intestinal haemorrhagic [Recovered/Resolved]

NARRATIVE: CASE EVENT DATE: 20190322
